FAERS Safety Report 6912782-5 (Version None)
Quarter: 2010Q3

REPORT INFORMATION
  Report Type: 
  Country: None (occurrence: None)
  Receive Date: 20100806
  Receipt Date: 20081212
  Transmission Date: 20110219
  Serious: No
  Sender: FDA-Public Use
  Company Number: US-PFIZER INC-2005100859

PATIENT
  Sex: Female
  Weight: 61.2 kg

DRUGS (3)
  1. DETROL LA [Suspect]
     Route: 065
     Dates: start: 20050501
  2. LEVOXYL [Concomitant]
     Route: 048
     Dates: start: 20020101
  3. LOTREL [Concomitant]
     Route: 048
     Dates: start: 20010101

REACTIONS (3)
  - DRUG INEFFECTIVE [None]
  - INAPPROPRIATE SCHEDULE OF DRUG ADMINISTRATION [None]
  - URINARY RETENTION [None]
